FAERS Safety Report 4619277-2 (Version None)
Quarter: 2005Q1

REPORT INFORMATION
  Report Type: 
  Country: None (occurrence: None)
  Receive Date: 20050325
  Receipt Date: 20050216
  Transmission Date: 20050727
  Serious: Yes (Hospitalization, Other)
  Sender: FDA-Public Use
  Company Number: JP-MERCK-0503USA01869

PATIENT
  Age: 74 Year
  Sex: Female

DRUGS (8)
  1. PRINIVIL [Suspect]
     Indication: HYPERTENSION
     Route: 048
     Dates: start: 20020401, end: 20030901
  2. [THERAPY UNSPECIFIED] [Concomitant]
     Route: 065
  3. LENDORM [Concomitant]
     Route: 048
     Dates: start: 19951101, end: 20030901
  4. RIZE [Concomitant]
     Route: 048
     Dates: start: 19990501
  5. CONIEL [Concomitant]
     Indication: HYPERTENSION
     Route: 048
     Dates: start: 20010201, end: 20030901
  6. AMOBAN [Concomitant]
     Route: 048
     Dates: start: 20030801
  7. VITAMIN E NICOTINATE [Concomitant]
     Indication: HYPERLIPIDAEMIA
     Route: 048
     Dates: end: 20030901
  8. SELBEX [Concomitant]
     Route: 048
     Dates: end: 20030901

REACTIONS (3)
  - HYPONATRAEMIA [None]
  - INAPPROPRIATE ANTIDIURETIC HORMONE SECRETION [None]
  - RHABDOMYOLYSIS [None]
